FAERS Safety Report 5677356-5 (Version None)
Quarter: 2008Q1

REPORT INFORMATION
  Report Type: 
  Country: None (occurrence: None)
  Receive Date: 20080318
  Receipt Date: 20080305
  Transmission Date: 20080703
  Serious: Yes (Other)
  Sender: FDA-Public Use
  Company Number: GXKR2008NL02325

PATIENT
  Age: 9 Year
  Sex: Female

DRUGS (1)
  1. CLONIDINE                   (CLONIDINE HYDROCHLORIDE) UNKNOWN [Suspect]
     Indication: ATTENTION DEFICIT/HYPERACTIVITY DISORDER
     Dosage: 0.025 MG, BID

REACTIONS (1)
  - STATUS EPILEPTICUS [None]
